FAERS Safety Report 21965376 (Version 1)
Quarter: 2023Q1

REPORT INFORMATION
  Report Type: Spontaneous
  Country: JP (occurrence: JP)
  Receive Date: 20230208
  Receipt Date: 20230208
  Transmission Date: 20230417
  Serious: Yes (Other)
  Sender: FDA-Public Use
  Company Number: JP-CHUGAI-2023003240

PATIENT
  Age: 80 Year
  Sex: Female

DRUGS (1)
  1. POLIVY [Suspect]
     Active Substance: POLATUZUMAB VEDOTIN-PIIQ
     Indication: Diffuse large B-cell lymphoma
     Dosage: 1.8 MILLIGRAM/KILOGRAM, ONCE/3WEEKS
     Route: 041

REACTIONS (1)
  - Coronavirus infection [Not Recovered/Not Resolved]

NARRATIVE: CASE EVENT DATE: 20221213
